FAERS Safety Report 6496596-9 (Version None)
Quarter: 2009Q4

REPORT INFORMATION
  Report Type: 
  Country: None (occurrence: None)
  Receive Date: 20091214
  Receipt Date: 20091204
  Transmission Date: 20100525
  Serious: Yes (Other)
  Sender: FDA-Public Use
  Company Number: JP-MERCK-0912USA00400

PATIENT
  Age: 58 Year
  Sex: Female

DRUGS (14)
  1. PEPCID RPD [Suspect]
     Indication: GASTRIC ULCER
     Route: 048
     Dates: start: 20071207, end: 20091106
  2. PEPCID RPD [Suspect]
     Indication: GASTRITIS
     Route: 048
     Dates: start: 20071207, end: 20091106
  3. ARTIST [Concomitant]
     Indication: HYPERTENSION
     Route: 065
     Dates: start: 20010921
  4. MICARDIS [Concomitant]
     Indication: HYPERTENSION
     Route: 065
     Dates: start: 20060127
  5. AMLODIPINE BESYLATE [Concomitant]
     Indication: HYPERTENSION
     Route: 065
     Dates: start: 20080516
  6. BEZATOL [Concomitant]
     Indication: HYPERLIPIDAEMIA
     Route: 065
     Dates: start: 20071207
  7. GASMOTIN [Concomitant]
     Route: 065
     Dates: start: 20090522
  8. RISPERIDONE [Concomitant]
     Route: 065
  9. CERCINE [Concomitant]
     Route: 065
  10. ZYPREXA [Concomitant]
     Route: 065
  11. AMOXAN [Concomitant]
     Route: 065
  12. ABILIFY [Concomitant]
     Route: 065
  13. PEPCID [Concomitant]
     Route: 048
     Dates: start: 20041008, end: 20071019
  14. AKINETON TABLETS [Concomitant]
     Route: 065

REACTIONS (1)
  - ELECTROCARDIOGRAM QT PROLONGED [None]
